FAERS Safety Report 24907850 (Version 2)
Quarter: 2025Q2

REPORT INFORMATION
  Report Type: Spontaneous
  Country: US (occurrence: US)
  Receive Date: 20250131
  Receipt Date: 20250424
  Transmission Date: 20250716
  Serious: No
  Sender: MERCK SHARP & DOHME LLC
  Company Number: US-009507513-2501USA004942

PATIENT
  Age: 53 Year
  Sex: Female
  Weight: 86.3 kg

DRUGS (7)
  1. WINREVAIR [Suspect]
     Active Substance: SOTATERCEPT-CSRK
     Indication: Pulmonary arterial hypertension
     Route: 058
     Dates: start: 20241015
  2. WINREVAIR [Suspect]
     Active Substance: SOTATERCEPT-CSRK
  3. WINREVAIR [Suspect]
     Active Substance: SOTATERCEPT-CSRK
  4. WINREVAIR [Suspect]
     Active Substance: SOTATERCEPT-CSRK
  5. ADEMPAS [Concomitant]
     Active Substance: RIOCIGUAT
  6. OPSUMIT [Concomitant]
     Active Substance: MACITENTAN
  7. TYVASO DPI [Concomitant]
     Active Substance: TREPROSTINIL

REACTIONS (1)
  - Eye contusion [Recovered/Resolved]

NARRATIVE: CASE EVENT DATE: 20241001
